FAERS Safety Report 12308196 (Version 4)
Quarter: 2016Q3

REPORT INFORMATION
  Report Type: Spontaneous
  Country: US (occurrence: US)
  Receive Date: 20160426
  Receipt Date: 20160722
  Transmission Date: 20161109
  Serious: No
  Sender: FDA-Public Use
  Company Number: US-B.I. PHARMACEUTICALS,INC./RIDGEFIELD-2016-BI-23444BP

PATIENT
  Sex: Female

DRUGS (1)
  1. COMBIVENT [Suspect]
     Active Substance: ALBUTEROL SULFATE\IPRATROPIUM BROMIDE
     Indication: PRODUCT USED FOR UNKNOWN INDICATION
     Dosage: DOSE PER APPLICATION: 20 MCG / 100 MCG; DAILY DOSE:  40 MCG / 200 MCG
     Route: 055

REACTIONS (3)
  - Nervousness [Not Recovered/Not Resolved]
  - Product quality issue [Recovered/Resolved]
  - Frustration tolerance decreased [Not Recovered/Not Resolved]

NARRATIVE: CASE EVENT DATE: 201604
